FAERS Safety Report 8896259 (Version 1)
Quarter: 2012Q4

REPORT INFORMATION
  Report Type: Spontaneous
  Country: GB (occurrence: None)
  Receive Date: 20121031
  Receipt Date: 20121031
  Transmission Date: 20130627
  Serious: Yes (Other)
  Sender: FDA-Public Use
  Company Number: DSA_60336_2012

PATIENT
  Sex: Female

DRUGS (5)
  1. METRONIDAZOLE (METRONIDAZOLE) [Suspect]
     Indication: WOUND INFECTION
  2. TRAMADOL [Concomitant]
  3. AMOXICILLIN\CLAVULANATE POTASSIUM [Concomitant]
  4. PARACETAMOL [Concomitant]
  5. CITALOPRAM [Concomitant]

REACTIONS (1)
  - Arthralgia [None]
